FAERS Safety Report 17153076 (Version 5)
Quarter: 2021Q1

REPORT INFORMATION
  Report Type: Report from Study
  Country: JP (occurrence: JP)
  Receive Date: 20191213
  Receipt Date: 20210106
  Transmission Date: 20210419
  Serious: Yes (Life-Threatening, Hospitalization)
  Sender: FDA-Public Use
  Company Number: JP-ASTRAZENECA-2019SF03257

PATIENT
  Age: 79 Year
  Sex: Male
  Weight: 74 kg

DRUGS (8)
  1. SILODOSIN. [Concomitant]
     Active Substance: SILODOSIN
     Dosage: 4 MG/2 TABLETS
     Route: 065
  2. LANSOPRAZOLE. [Concomitant]
     Active Substance: LANSOPRAZOLE
     Dosage: OD15 MG/1 TABLET
     Route: 065
  3. IMFINZI [Suspect]
     Active Substance: DURVALUMAB
     Indication: NON-SMALL CELL LUNG CANCER
     Route: 041
     Dates: start: 20190513, end: 20190628
  4. IMFINZI [Suspect]
     Active Substance: DURVALUMAB
     Indication: NON-SMALL CELL LUNG CANCER
     Route: 041
     Dates: start: 20190726, end: 20191122
  5. LUBIPROSTONE [Concomitant]
     Active Substance: LUBIPROSTONE
     Dosage: 24 UG/2 CAPSULES
     Route: 065
  6. MAGNESIUM OXIDE. [Concomitant]
     Active Substance: MAGNESIUM OXIDE
     Dosage: 250 MG/2 TABLETS
     Route: 065
  7. BROTIZOLAM [Concomitant]
     Active Substance: BROTIZOLAM
     Dosage: 0.25 MG/1 TABLET
     Route: 065
  8. OMEGA?3?ACID ETHYL ESTERS. [Concomitant]
     Active Substance: OMEGA-3-ACID ETHYL ESTERS
     Dosage: 2 G/1 PACKET
     Route: 065

REACTIONS (4)
  - Immune-mediated hepatitis [Recovering/Resolving]
  - Hepatic function abnormal [Not Recovered/Not Resolved]
  - Hypothyroidism [Recovered/Resolved]
  - Radiation pneumonitis [Recovering/Resolving]

NARRATIVE: CASE EVENT DATE: 20190614
